FAERS Safety Report 5600366-0 (Version None)
Quarter: 2008Q1

REPORT INFORMATION
  Report Type: 
  Country: None (occurrence: None)
  Receive Date: 20080123
  Receipt Date: 20080114
  Transmission Date: 20080703
  Serious: Yes (Hospitalization)
  Sender: FDA-Public Use
  Company Number: FR-ASTRAZENECA-2008CG00075

PATIENT
  Age: 4951 Day
  Sex: Female
  Weight: 35 kg

DRUGS (34)
  1. DIPRIVAN [Suspect]
     Indication: ANAESTHESIA
     Route: 042
     Dates: start: 20070927, end: 20070927
  2. DIPRIVAN [Suspect]
     Route: 042
     Dates: start: 20071017, end: 20071017
  3. DEPAKENE [Suspect]
     Indication: EPILEPSY
     Route: 048
     Dates: start: 20050101, end: 20071026
  4. MOPRAL [Concomitant]
  5. VALIUM [Concomitant]
     Indication: EPILEPSY
  6. SUFENTA [Concomitant]
     Indication: ANAESTHESIA
     Dates: start: 20070927, end: 20070927
  7. SUFENTA [Concomitant]
     Dates: start: 20070927, end: 20070927
  8. SUFENTA [Concomitant]
     Dates: start: 20071017, end: 20071017
  9. HYPNOVEL [Concomitant]
     Indication: ANAESTHESIA
     Dates: start: 20070927, end: 20070927
  10. HYPNOVEL [Concomitant]
     Indication: SEDATION
     Dates: start: 20070927, end: 20070927
  11. HYPNOVEL [Concomitant]
     Dates: start: 20070927, end: 20070927
  12. HYPNOVEL [Concomitant]
     Dates: start: 20070927, end: 20070927
  13. HYPNOVEL [Concomitant]
     Dates: start: 20071017, end: 20071017
  14. HYPNOVEL [Concomitant]
     Dates: start: 20071017, end: 20071017
  15. SEVOFLURANE [Concomitant]
     Indication: ANAESTHESIA
     Dates: start: 20070927, end: 20070927
  16. DESFLURANE [Concomitant]
     Indication: ANAESTHESIA
     Dates: start: 20070927, end: 20070927
  17. DESFLURANE [Concomitant]
     Dates: start: 20070927, end: 20070927
  18. DESFLURANE [Concomitant]
     Dates: start: 20071017, end: 20071017
  19. EPHEDRINE [Concomitant]
     Indication: VASOCONSTRICTION
     Dates: start: 20070927, end: 20070927
  20. EXACYL [Concomitant]
     Indication: VASOCONSTRICTION
     Dates: start: 20070927, end: 20070927
  21. NEOSYNEPHRINE [Concomitant]
     Indication: VASOCONSTRICTION
     Dates: start: 20070927, end: 20070927
  22. CEFAZOLIN [Concomitant]
     Dates: start: 20070927
  23. GENTAMICIN [Concomitant]
     Dates: start: 20070927, end: 20071020
  24. MORPHINE [Concomitant]
     Indication: ANALGESIA
     Dates: start: 20070927, end: 20070927
  25. MORPHINE [Concomitant]
     Dates: start: 20071017
  26. LOVENOX [Concomitant]
  27. SCOPODERM [Concomitant]
     Route: 061
  28. PERFALGAN [Concomitant]
  29. SPASFON [Concomitant]
  30. ZOPHREN [Concomitant]
  31. PRIMPERAN INJ [Concomitant]
  32. VANCOMYCIN [Concomitant]
  33. TIENAM [Concomitant]
  34. NUBAIN [Concomitant]

REACTIONS (3)
  - GLUCOSE TOLERANCE IMPAIRED [None]
  - LIPASE INCREASED [None]
  - PANCREATITIS [None]
